FAERS Safety Report 12604738 (Version 1)
Quarter: 2016Q3

REPORT INFORMATION
  Report Type: Spontaneous
  Country: DK (occurrence: FR)
  Receive Date: 20160728
  Receipt Date: 20160728
  Transmission Date: 20161109
  Serious: Yes (Hospitalization)
  Sender: FDA-Public Use
  Company Number: FR-FRI-1000086499

PATIENT
  Age: 61 Year
  Sex: Female

DRUGS (5)
  1. NAPROSYNE [Suspect]
     Active Substance: NAPROXEN
     Indication: ARTHRITIS
     Dosage: DAILY DOSE NOT REPORTED
     Route: 048
     Dates: end: 201205
  2. VOLTAREN [Suspect]
     Active Substance: DICLOFENAC SODIUM
     Indication: PRODUCT USED FOR UNKNOWN INDICATION
     Dosage: 150 MG
     Route: 048
     Dates: start: 201205, end: 20120606
  3. ESCITALOPRAM [Suspect]
     Active Substance: ESCITALOPRAM OXALATE
     Indication: PRODUCT USED FOR UNKNOWN INDICATION
     Dosage: 10 MG
     Route: 048
  4. ALTIM [Suspect]
     Active Substance: CORTIVAZOL
     Indication: ARTHRITIS
     Dosage: DAILY DOSE NOT REPORTED
     Route: 014
  5. SERESTA [Suspect]
     Active Substance: OXAZEPAM
     Indication: PRODUCT USED FOR UNKNOWN INDICATION
     Dosage: 25 MG
     Route: 048

REACTIONS (2)
  - Jaundice [Recovered/Resolved]
  - Hepatitis [Recovered/Resolved]

NARRATIVE: CASE EVENT DATE: 201206
